FAERS Safety Report 23690033 (Version 1)
Quarter: 2024Q2

REPORT INFORMATION
  Report Type: Spontaneous
  Country: US (occurrence: US)
  Receive Date: 20240401
  Receipt Date: 20240401
  Transmission Date: 20240716
  Serious: No
  Sender: FDA-Public Use
  Company Number: US-MTPC-MTDA2024-0005441

PATIENT
  Sex: Male

DRUGS (2)
  1. RADICAVA ORS [Suspect]
     Active Substance: EDARAVONE
     Indication: Product used for unknown indication
     Dosage: UNK, QD FOR 10 OUT OF 14 DAYS THEN14-DAY DRUG FREE PERIOD.
     Route: 065
     Dates: start: 20230901
  2. RADICAVA ORS [Suspect]
     Active Substance: EDARAVONE
     Indication: Product used for unknown indication
     Dosage: UNK, QD FOR 10 OUT OF 14 DAYS THEN14-DAY DRUG FREE PERIOD.
     Route: 065
     Dates: start: 20230901

REACTIONS (1)
  - Inappropriate schedule of product administration [Unknown]
